FAERS Safety Report 9603024 (Version 4)
Quarter: 2013Q4

REPORT INFORMATION
  Report Type: Report from Study
  Country: US (occurrence: US)
  Receive Date: 20131007
  Receipt Date: 20131107
  Transmission Date: 20140711
  Serious: Yes (Hospitalization, Disabling, Other)
  Sender: FDA-Public Use
  Company Number: US-ACTELION-A-US2013-88777

PATIENT
  Age: 50 Year
  Sex: Male

DRUGS (19)
  1. TRACLEER [Suspect]
     Indication: PORTOPULMONARY HYPERTENSION
     Dosage: 125 MG, BID
     Route: 048
  2. VENTAVIS [Suspect]
     Indication: PORTOPULMONARY HYPERTENSION
     Dosage: 2.5 MCG, Q4HRS
     Route: 055
  3. SILDENAFIL [Concomitant]
  4. ADVAIR [Concomitant]
     Dosage: 1 PUFF, BID
  5. DUONEB [Concomitant]
     Dosage: UNK, Q4HRS
  6. PROAIR HFA [Concomitant]
     Dosage: 2 PUFF, Q4HRS
  7. NASONEX [Concomitant]
     Dosage: 2 SPRAY, UNK
  8. SALINE [Concomitant]
     Dosage: UNK, PRN
  9. LASIX [Concomitant]
     Dosage: 40 MG, QD
     Route: 048
  10. SPIRONOLACTONE [Concomitant]
     Dosage: 100 MG, QD
     Route: 048
  11. KLOR-CON [Concomitant]
     Dosage: 20 MEQ, QD
     Route: 048
  12. CALCIUM MAGNESIUM ZINC [Concomitant]
     Dosage: UNK, BID
  13. OMEPRAZOLE [Concomitant]
     Dosage: 40 MG, QD
     Route: 048
  14. ALLOPURINOL [Concomitant]
     Dosage: 200 MG, QD
     Route: 048
  15. MAGNESIUM [Concomitant]
     Dosage: 400 MG, BID
  16. OXYGEN [Concomitant]
     Dosage: 2 L/MIN, UNK
  17. SYNTHROID [Concomitant]
     Dosage: 175 MCG, QD
  18. LACTULOSE [Concomitant]
     Dosage: 30 ML, BID
     Route: 048
  19. RIFAXIMIN [Concomitant]
     Dosage: 550 MG, BID
     Route: 048

REACTIONS (6)
  - Transplant [Unknown]
  - Pyrexia [Unknown]
  - Transplant evaluation [Unknown]
  - Gout [Unknown]
  - Fluid overload [Unknown]
  - Nausea [Unknown]
